FAERS Safety Report 9515772 (Version 4)
Quarter: 2013Q4

REPORT INFORMATION
  Report Type: Spontaneous
  Country: US (occurrence: US)
  Receive Date: 20130911
  Receipt Date: 20131125
  Transmission Date: 20140711
  Serious: Yes (Other)
  Sender: FDA-Public Use
  Company Number: US-PFIZER INC-2013258958

PATIENT
  Age: 50 Year
  Sex: Male
  Weight: 68.03 kg

DRUGS (2)
  1. CAVERJECT [Suspect]
     Indication: PENIS DISORDER
     Dosage: 45 MG, AS NEEDED
     Dates: start: 1987
  2. INSULIN [Concomitant]
     Indication: DIABETES MELLITUS
     Dosage: UNK, AS NEEDED

REACTIONS (2)
  - Renal disorder [Unknown]
  - Malaise [Unknown]
